FAERS Safety Report 4517511-0 (Version None)
Quarter: 2004Q4

REPORT INFORMATION
  Report Type: 
  Country: None (occurrence: None)
  Receive Date: 20041130
  Receipt Date: 20040330
  Transmission Date: 20050328
  Serious: Yes (Hospitalization)
  Sender: FDA-Public Use
  Company Number: US_0402101088

PATIENT
  Age: 38 Year
  Sex: Female
  Weight: 67 kg

DRUGS (2)
  1. DULOXETINE HYDROCHLORIDE [Suspect]
     Indication: MAJOR DEPRESSION
     Dosage: 60 MG DAY
     Dates: start: 20040122, end: 20040305
  2. MOTRIN [Concomitant]

REACTIONS (9)
  - COMPUTERISED TOMOGRAM ABNORMAL [None]
  - CONSTIPATION [None]
  - DEHYDRATION [None]
  - ERUCTATION [None]
  - FLATULENCE [None]
  - GASTROINTESTINAL EROSION [None]
  - HOT FLUSH [None]
  - SMALL INTESTINAL OBSTRUCTION [None]
  - UTERINE CANCER [None]
